FAERS Safety Report 5963816-6 (Version None)
Quarter: 2008Q4

REPORT INFORMATION
  Report Type: 
  Country: None (occurrence: None)
  Receive Date: 20081121
  Receipt Date: 20081121
  Transmission Date: 20090506
  Serious: Yes (Other)
  Sender: FDA-Public Use
  Company Number: None

PATIENT
  Age: 50 Year
  Sex: Female
  Weight: 84.8226 kg

DRUGS (2)
  1. IBANDRONATE [Suspect]
     Indication: OSTEOPOROSIS
     Dosage: 150 Q MONTH PO
     Route: 048
     Dates: start: 20060101, end: 20080101
  2. ALENDRONATE SODIUM [Suspect]
     Indication: OSTEOPOROSIS
     Dosage: 70 MG Q WEEK PO
     Route: 048
     Dates: start: 20010101, end: 20060101

REACTIONS (2)
  - EXOSTOSIS [None]
  - JAW DISORDER [None]
